FAERS Safety Report 10041815 (Version 2)
Quarter: 2014Q2

REPORT INFORMATION
  Report Type: Spontaneous
  Country: DE (occurrence: DE)
  Receive Date: 20140327
  Receipt Date: 20140409
  Transmission Date: 20141212
  Serious: Yes (Death)
  Sender: FDA-Public Use
  Company Number: DE-BAXTER-2014BAX015098

PATIENT
  Sex: Male

DRUGS (2)
  1. DIANEAL PDG 4 1,36 % [Suspect]
     Indication: PERITONEAL DIALYSIS
     Route: 033
  2. DIANEAL PDG 4 3,86 % [Suspect]
     Indication: PERITONEAL DIALYSIS
     Route: 033

REACTIONS (1)
  - Death [Fatal]
